FAERS Safety Report 19845716 (Version 1)
Quarter: 2021Q3

REPORT INFORMATION
  Report Type: Spontaneous
  Country: DE (occurrence: DE)
  Receive Date: 20210917
  Receipt Date: 20210917
  Transmission Date: 20211014
  Serious: Yes (Other)
  Sender: FDA-Public Use
  Company Number: DE-GLAXOSMITHKLINE-DE2021EME193691

PATIENT
  Sex: Female

DRUGS (1)
  1. LAMOTRIGINE. [Suspect]
     Active Substance: LAMOTRIGINE
     Indication: EPILEPSY
     Dosage: UNK
     Dates: start: 202102

REACTIONS (8)
  - Pain [Unknown]
  - Nail aplasia [Unknown]
  - Swelling [Unknown]
  - Erythema [Unknown]
  - Nail bed disorder [Unknown]
  - Excessive granulation tissue [Unknown]
  - Nail disorder [Unknown]
  - Wound secretion [Unknown]
